FAERS Safety Report 8511931-5 (Version None)
Quarter: 2012Q3

REPORT INFORMATION
  Report Type: 
  Country: None (occurrence: None)
  Receive Date: 20120716
  Receipt Date: 20120705
  Transmission Date: 20120928
  Serious: Yes (Hospitalization, Other)
  Sender: FDA-Public Use
  Company Number: US-ASTRAZENECA-2012SE46439

PATIENT
  Age: 766 Month
  Sex: Female

DRUGS (1)
  1. ZOMIG [Suspect]
     Route: 048

REACTIONS (9)
  - VIOLENCE-RELATED SYMPTOM [None]
  - HALLUCINATION [None]
  - INTENTIONAL DRUG MISUSE [None]
  - EMOTIONAL DISORDER [None]
  - MEMORY IMPAIRMENT [None]
  - SUICIDAL IDEATION [None]
  - CONFUSIONAL STATE [None]
  - WEIGHT DECREASED [None]
  - SOMATOFORM DISORDER [None]
